FAERS Safety Report 8937139 (Version 1)
Quarter: 2012Q4

REPORT INFORMATION
  Report Type: 
  Country: DE (occurrence: None)
  Receive Date: 20121123
  Receipt Date: 20121123
  Transmission Date: 20130627
  Serious: Yes (Congenital Anomaly)
  Sender: FDA-Public Use
  Company Number: AUR-APL-2012-04905

PATIENT
  Sex: Male
  Weight: 3.86 kg

DRUGS (4)
  1. PAROXETINE (PAROXETINE) [Suspect]
     Indication: DEPRESSION
     Dosage: 20 mg/day (dosage varying from 10mg/d to 20mg/d) (1 D), Transplacental
     Route: 064
     Dates: start: 20110430, end: 20120125
  2. GYNVITAL GRAVIDA (FOLIC ACID) [Concomitant]
  3. NASIC [Concomitant]
  4. RENNIE (GALENIC /MAGNESIUM CARB/CALCIUM CARB) [Concomitant]

REACTIONS (4)
  - Uterine malposition [None]
  - Foot deformity [None]
  - Cryptorchism [None]
  - Maternal drugs affecting foetus [None]
